FAERS Safety Report 9454358 (Version 1)
Quarter: 2013Q3

REPORT INFORMATION
  Report Type: Spontaneous
  Country: FR (occurrence: FR)
  Receive Date: 20130812
  Receipt Date: 20130812
  Transmission Date: 20140515
  Serious: Yes (Other)
  Sender: FDA-Public Use
  Company Number: FR-BRISTOL-MYERS SQUIBB COMPANY-19162239

PATIENT
  Age: 41 Year
  Sex: Female

DRUGS (3)
  1. REYATAZ CAPS 200 MG [Suspect]
     Indication: HIV INFECTION
     Route: 048
     Dates: start: 20060915, end: 201303
  2. NORVIR [Concomitant]
     Indication: HIV INFECTION
     Dosage: CAPS
     Route: 048
     Dates: start: 20060915
  3. VIRAMUNE [Concomitant]
     Indication: HIV INFECTION
     Route: 048
     Dates: start: 20070615

REACTIONS (1)
  - Renal colic [Recovering/Resolving]
